FAERS Safety Report 7159116-1 (Version None)
Quarter: 2010Q4

REPORT INFORMATION
  Report Type: 
  Country: None (occurrence: None)
  Receive Date: 20101214
  Receipt Date: 20100727
  Transmission Date: 20110411
  Serious: No
  Sender: FDA-Public Use
  Company Number: US-ASTRAZENECA-2010SE35042

PATIENT
  Age: 84 Year
  Sex: Male
  Weight: 59 kg

DRUGS (2)
  1. CRESTOR [Suspect]
     Indication: LOW DENSITY LIPOPROTEIN
     Route: 048
     Dates: start: 20100401
  2. COZAAR [Concomitant]
     Indication: HYPERTENSION

REACTIONS (1)
  - SOMNOLENCE [None]
